FAERS Safety Report 9448844 (Version 1)
Quarter: 2013Q3

REPORT INFORMATION
  Report Type: Spontaneous
  Country: IT (occurrence: None)
  Receive Date: 20130806
  Receipt Date: 20130806
  Transmission Date: 20140515
  Serious: Yes (Other)
  Sender: FDA-Public Use
  Company Number: GER/ITL/13/0033634

PATIENT
  Age: 85 Year
  Sex: Female

DRUGS (3)
  1. CLOPIDOGREL (CLOPIDOGREL) [Suspect]
     Indication: MYOCARDIAL ISCHAEMIA
     Dosage: 1 IN 1 D
     Route: 048
     Dates: end: 2012
  2. TICLOPIDINE [Suspect]
     Indication: PRODUCT USED FOR UNKNOWN INDICATION
  3. SIMVASTATIN (SIMVASTATIN) [Suspect]
     Indication: HYPERCHOLESTEROLAEMIA
     Dosage: 1 IN 1 D
     Route: 048
     Dates: end: 2012

REACTIONS (3)
  - Hepatitis acute [None]
  - Skin lesion [None]
  - Scratch [None]
